FAERS Safety Report 25796054 (Version 1)
Quarter: 2025Q3

REPORT INFORMATION
  Report Type: Spontaneous
  Country: US (occurrence: None)
  Receive Date: 20250911
  Receipt Date: 20250911
  Transmission Date: 20251020
  Serious: Yes (Other)
  Sender: FDA-CTU
  Company Number: None

PATIENT
  Age: 19 Year
  Sex: Female
  Weight: 46.8 kg

DRUGS (3)
  1. ESCITALOPRAM [Suspect]
     Active Substance: ESCITALOPRAM OXALATE
     Indication: Anxiety
  2. ESCITALOPRAM [Suspect]
     Active Substance: ESCITALOPRAM OXALATE
     Indication: Depression
  3. Lo Estrine (birth control) [Concomitant]

REACTIONS (9)
  - Feeling abnormal [None]
  - Therapy cessation [None]
  - Drug withdrawal syndrome [None]
  - Mental disorder [None]
  - Abnormal dreams [None]
  - Dizziness [None]
  - Anxiety [None]
  - Vomiting [None]
  - Presyncope [None]

NARRATIVE: CASE EVENT DATE: 20250825
